FAERS Safety Report 20021029 (Version 1)
Quarter: 2021Q4

REPORT INFORMATION
  Report Type: Spontaneous
  Country: US (occurrence: US)
  Receive Date: 20211101
  Receipt Date: 20211101
  Transmission Date: 20220303
  Serious: No
  Sender: FDA-Public Use
  Company Number: US-ENDO PHARMACEUTICALS INC-2020-007267

PATIENT
  Age: 74 Year
  Sex: Male
  Weight: 73.5 kg

DRUGS (1)
  1. VALSTAR [Suspect]
     Active Substance: VALRUBICIN
     Indication: Bladder cancer
     Dosage: UNK UNKNOWN, UNKNOWN
     Route: 065
     Dates: start: 20201030

REACTIONS (1)
  - Bladder irritation [Unknown]

NARRATIVE: CASE EVENT DATE: 20201030
